FAERS Safety Report 7991739-X (Version None)
Quarter: 2011Q4

REPORT INFORMATION
  Report Type: 
  Country: None (occurrence: None)
  Receive Date: 20111219
  Receipt Date: 20111212
  Transmission Date: 20120403
  Serious: Yes (Death, Other)
  Sender: FDA-Public Use
  Company Number: PHHY2011JP108101

PATIENT
  Age: 62 Year
  Sex: Female

DRUGS (3)
  1. GLEEVEC [Suspect]
     Indication: GASTROINTESTINAL STROMAL TUMOUR
     Dosage: UNK
  2. GLEEVEC [Suspect]
     Dosage: 300 MG, DAILY
  3. GLEEVEC [Suspect]
     Dosage: 400 MG, DAILY
     Dates: start: 20041201, end: 20050501

REACTIONS (8)
  - NEOPLASM MALIGNANT [None]
  - GASTROINTESTINAL STROMAL TUMOUR [None]
  - NEOPLASM PROGRESSION [None]
  - RASH GENERALISED [None]
  - DEATH [None]
  - ABDOMINAL PAIN [None]
  - NEOPLASM RECURRENCE [None]
  - DRUG RESISTANCE [None]
